FAERS Safety Report 24024491 (Version 3)
Quarter: 2024Q3

REPORT INFORMATION
  Report Type: Report from Study
  Country: CO (occurrence: CO)
  Receive Date: 20240628
  Receipt Date: 20240710
  Transmission Date: 20241017
  Serious: No
  Sender: ROCHE
  Company Number: CO-ROCHE-3512798

PATIENT
  Age: 84 Year
  Sex: Male
  Weight: 48.0 kg

DRUGS (38)
  1. ALECTINIB [Suspect]
     Active Substance: ALECTINIB
     Indication: Non-small cell lung cancer metastatic
     Route: 048
     Dates: start: 20230428
  2. PREGABALIN [Concomitant]
     Active Substance: PREGABALIN
     Indication: Cancer pain
     Route: 048
     Dates: start: 202211, end: 20231213
  3. PREGABALIN [Concomitant]
     Active Substance: PREGABALIN
     Indication: Cancer pain
     Route: 048
     Dates: start: 20231214, end: 20240108
  4. PREGABALIN [Concomitant]
     Active Substance: PREGABALIN
     Route: 048
     Dates: start: 20240109, end: 20240130
  5. PREGABALIN [Concomitant]
     Active Substance: PREGABALIN
     Route: 048
     Dates: start: 20240131
  6. OXYGEN [Concomitant]
     Active Substance: OXYGEN
     Route: 055
     Dates: start: 20230508
  7. LOSARTAN [Concomitant]
     Active Substance: LOSARTAN
     Indication: Hypertension
     Route: 048
  8. LOSARTAN [Concomitant]
     Active Substance: LOSARTAN
     Route: 048
     Dates: start: 20240113
  9. IPRATROPIUM BROMIDE [Concomitant]
     Active Substance: IPRATROPIUM BROMIDE\IPRATROPIUM BROMIDE ANHYDROUS
     Indication: Chronic respiratory disease
     Route: 055
  10. AMLODIPINE [Concomitant]
     Active Substance: AMLODIPINE BESYLATE
     Indication: Hypertension
     Route: 048
     Dates: start: 20230825, end: 20240112
  11. AMLODIPINE [Concomitant]
     Active Substance: AMLODIPINE BESYLATE
     Route: 048
     Dates: start: 20240113
  12. VITAMIN D3 [Concomitant]
     Active Substance: CHOLECALCIFEROL
     Route: 048
  13. POLYETHYLENE GLYCOL [Concomitant]
     Active Substance: POLYETHYLENE GLYCOL
     Indication: Constipation
     Route: 048
     Dates: start: 20230828
  14. ACETAMINOPHEN [Concomitant]
     Active Substance: ACETAMINOPHEN
     Indication: Cancer pain
     Route: 048
     Dates: start: 20231021
  15. HYDROMORPHONE [Concomitant]
     Active Substance: HYDROMORPHONE
     Indication: Cancer pain
     Route: 048
  16. HYDROMORPHONE [Concomitant]
     Active Substance: HYDROMORPHONE
     Route: 042
     Dates: start: 20231129, end: 20231212
  17. HYDROMORPHONE [Concomitant]
     Active Substance: HYDROMORPHONE
     Route: 048
     Dates: start: 20231213
  18. CARBOPLATIN [Concomitant]
     Active Substance: CARBOPLATIN
     Dates: start: 20231228, end: 20240124
  19. PEMETREXED [Concomitant]
     Active Substance: PEMETREXED
     Dates: start: 20231228, end: 20240124
  20. BEVACIZUMAB [Concomitant]
     Active Substance: BEVACIZUMAB
     Dates: start: 20231228, end: 20240124
  21. ALECTINIB [Concomitant]
     Active Substance: ALECTINIB
     Indication: Lung neoplasm malignant
     Dates: start: 202302
  22. CARBOPLATIN [Concomitant]
     Active Substance: CARBOPLATIN
  23. DICLOFENAC [Concomitant]
     Active Substance: DICLOFENAC
     Indication: Cancer pain
     Route: 042
     Dates: start: 20231216, end: 20231216
  24. PYRIDOXINE HYDROCHLORIDE [Concomitant]
     Active Substance: PYRIDOXINE HYDROCHLORIDE
     Indication: Cancer pain
     Route: 048
     Dates: start: 20231216, end: 20231216
  25. CYANOCOBALAMIN [Concomitant]
     Active Substance: CYANOCOBALAMIN
     Indication: Cancer pain
     Route: 030
     Dates: start: 20231216, end: 20231216
  26. BUPRENORPHINE [Concomitant]
     Active Substance: BUPRENORPHINE
     Indication: Cancer pain
     Dates: start: 20231219
  27. ONDANSETRON [Concomitant]
     Active Substance: ONDANSETRON
     Indication: Nausea
     Route: 042
     Dates: start: 20231128, end: 20231128
  28. ONDANSETRON [Concomitant]
     Active Substance: ONDANSETRON
     Indication: Vomiting
     Route: 042
     Dates: start: 20240124, end: 20240124
  29. DEXAMETHASONE [Concomitant]
     Active Substance: DEXAMETHASONE
     Indication: Nausea
     Route: 042
     Dates: start: 20231228, end: 20231228
  30. DEXAMETHASONE [Concomitant]
     Active Substance: DEXAMETHASONE
     Indication: Vomiting
  31. FOSAPREPITANT [Concomitant]
     Active Substance: FOSAPREPITANT
     Indication: Nausea
     Route: 042
     Dates: start: 20231228, end: 20231228
  32. FOSAPREPITANT [Concomitant]
     Active Substance: FOSAPREPITANT
     Indication: Vomiting
     Route: 042
     Dates: start: 20240124, end: 20240124
  33. PEGFILGRASTIM [Concomitant]
     Active Substance: PEGFILGRASTIM
     Route: 058
     Dates: start: 20231228, end: 20231228
  34. PEGFILGRASTIM [Concomitant]
     Active Substance: PEGFILGRASTIM
     Route: 058
     Dates: start: 20240124, end: 20240124
  35. DEXAMETHASONE [Concomitant]
     Active Substance: DEXAMETHASONE
     Indication: Nausea
     Route: 042
     Dates: start: 20240124, end: 20240124
  36. DEXAMETHASONE [Concomitant]
     Active Substance: DEXAMETHASONE
     Indication: Vomiting
  37. ZOLEDRONIC ACID [Concomitant]
     Active Substance: ZOLEDRONIC ACID
     Route: 042
     Dates: start: 20240124, end: 20240124
  38. LIDOCAINE [Concomitant]
     Active Substance: LIDOCAINE
     Indication: Cancer pain
     Dates: start: 20240131

REACTIONS (1)
  - Mucosal inflammation [Not Recovered/Not Resolved]

NARRATIVE: CASE EVENT DATE: 20240101
